FAERS Safety Report 4698812-2 (Version None)
Quarter: 2005Q2

REPORT INFORMATION
  Report Type: 
  Country: None (occurrence: None)
  Receive Date: 20050623
  Receipt Date: 20050611
  Transmission Date: 20051028
  Serious: Yes (Other)
  Sender: FDA-Public Use
  Company Number: 2005086551

PATIENT
  Age: 50 Year
  Sex: Female
  Weight: 56.6996 kg

DRUGS (1)
  1. UNISOM SLEEPGELS (DIPHENYDRAMINE) [Suspect]
     Dosage: UP TO 40 SLEEPGELS PER WEEK, ORAL
     Route: 048
     Dates: start: 20040101

REACTIONS (1)
  - DEPENDENCE [None]
